FAERS Safety Report 5795226-9 (Version None)
Quarter: 2008Q2

REPORT INFORMATION
  Report Type: 
  Country: None (occurrence: None)
  Receive Date: 20080630
  Receipt Date: 20080626
  Transmission Date: 20081010
  Serious: Yes (Other)
  Sender: FDA-Public Use
  Company Number: US-BRISTOL-MYERS SQUIBB COMPANY-14243810

PATIENT
  Age: 60 Year
  Sex: Male

DRUGS (1)
  1. ERBITUX [Suspect]
     Indication: HEAD AND NECK CANCER
     Dosage: RECEIVED IN FEB08-MAR08.7DAYS AFTER 1ST AND 2ND INFUSIONS
     Dates: start: 20080201

REACTIONS (1)
  - VENTRICULAR TACHYCARDIA [None]
